FAERS Safety Report 11248189 (Version 2)
Quarter: 2015Q3

REPORT INFORMATION
  Report Type: Report from Study
  Country: CZ (occurrence: CZ)
  Receive Date: 20150708
  Receipt Date: 20150811
  Transmission Date: 20151125
  Serious: Yes (Death)
  Sender: FDA-Public Use
  Company Number: CZ-ABBVIE-15P-217-1422936-00

PATIENT
  Sex: Male
  Weight: 63 kg

DRUGS (1)
  1. DUODOPA [Suspect]
     Active Substance: CARBIDOPA\LEVODOPA
     Indication: PRODUCT USED FOR UNKNOWN INDICATION
     Dosage: MORNING DOSE: 13.5 ML., CMD: 6.2 ML., E.D.:2.5ML FROM 6AM-10PM
     Route: 065

REACTIONS (3)
  - Cardiac arrest [Fatal]
  - Myocardial infarction [Fatal]
  - Incorrect dose administered [Unknown]
